FAERS Safety Report 5975168-6 (Version None)
Quarter: 2008Q4

REPORT INFORMATION
  Report Type: 
  Country: None (occurrence: None)
  Receive Date: 20081128
  Receipt Date: 20081118
  Transmission Date: 20090506
  Serious: Yes (Death, Hospitalization)
  Sender: FDA-Public Use
  Company Number: A-NJ2008-22660

PATIENT
  Age: 67 Year
  Sex: Female

DRUGS (11)
  1. VENTAVIS [Suspect]
     Indication: PULMONARY ARTERIAL HYPERTENSION
     Dosage: RESPIRATORY
     Route: 055
     Dates: start: 20081015, end: 20081101
  2. TRACLEER [Concomitant]
  3. FUROSEMIDE [Concomitant]
  4. PRAVASTATIN [Concomitant]
  5. ACETYLSALICYLIC ACID SRT [Concomitant]
  6. CENTRUM (VITAMINS NOS, MINERALS NOS) [Concomitant]
  7. FLAXSEED OIL (LINUM USITATISSIMUM SEED OIL) [Concomitant]
  8. POTASSIUM (POTASSIUM) [Concomitant]
  9. FOLIC ACID [Concomitant]
  10. FISH OIL (FISH OIL) [Concomitant]
  11. COENZYME Q10 [Concomitant]

REACTIONS (7)
  - CONDITION AGGRAVATED [None]
  - DIARRHOEA [None]
  - DYSPHAGIA [None]
  - DYSPNOEA [None]
  - FATIGUE [None]
  - NAUSEA [None]
  - VOMITING [None]
